FAERS Safety Report 7799580-8 (Version None)
Quarter: 2011Q4

REPORT INFORMATION
  Report Type: 
  Country: None (occurrence: None)
  Receive Date: 20111006
  Receipt Date: 20111003
  Transmission Date: 20120403
  Serious: Yes (Death, Life-Threatening, Hospitalization)
  Sender: FDA-Public Use
  Company Number: TW-BAYER-2010-005187

PATIENT
  Age: 56 Year
  Sex: Male
  Weight: 71 kg

DRUGS (18)
  1. SODIUM BICARBONATE [Concomitant]
     Indication: PROPHYLAXIS
     Dosage: 120 ML, ONCE
     Route: 042
     Dates: start: 20101216, end: 20101216
  2. DEXTROMETHORPHAN HYDROBROMIDE [Concomitant]
     Indication: PROPHYLAXIS
     Dosage: 20 MG, TID
     Route: 048
     Dates: start: 20101216, end: 20101216
  3. AMLODIPINE [Concomitant]
     Indication: HYPERTENSION
     Dosage: DAILY DOSE 2.5 MG
     Dates: start: 20101105, end: 20101111
  4. BARACLUDE [Concomitant]
     Indication: HEPATITIS B
     Dosage: DAILY DOSE .5 MG
     Route: 048
     Dates: start: 20101126, end: 20101216
  5. BROWN MIXTURE [Concomitant]
     Dosage: 15 ML, QID
     Route: 048
     Dates: start: 20101112, end: 20101216
  6. METOCLOPRAMIDE [Concomitant]
     Indication: NAUSEA
     Dosage: 15 MG, TID
     Route: 048
     Dates: start: 20101210, end: 20101216
  7. AMLODIPINE [Concomitant]
     Dosage: 5 MG, QD
     Route: 048
     Dates: start: 20101112, end: 20101216
  8. NEXAVAR [Suspect]
     Indication: HEPATIC NEOPLASM MALIGNANT
     Dosage: 400 MG, BID
     Route: 048
     Dates: start: 20101105, end: 20101125
  9. NOREPINEPHRINE BITARTRATE [Concomitant]
     Indication: PROPHYLAXIS
     Dosage: 16 MG, ONCE
     Route: 042
     Dates: start: 20101217, end: 20101217
  10. MORPHINE HCL ELIXIR [Concomitant]
     Indication: ABDOMINAL PAIN
     Dosage: 15 MG, STAT
     Route: 030
     Dates: start: 20101217, end: 20101217
  11. IOVERSOL [Concomitant]
     Indication: SCAN WITH CONTRAST
     Dosage: 100 ML, STAT
     Route: 042
     Dates: start: 20101214, end: 20101214
  12. IOVERSOL [Concomitant]
     Dosage: 100 ML, STAT
     Route: 042
     Dates: start: 20101102, end: 20101102
  13. NEXAVAR [Suspect]
     Dosage: 400 MG, QD
     Route: 048
     Dates: start: 20101126, end: 20101215
  14. BUMETANIDE [Concomitant]
     Indication: OEDEMA PERIPHERAL
     Dosage: 1 MG, QD
     Route: 048
     Dates: start: 20101210, end: 20101216
  15. CIMETIDINE [Concomitant]
     Indication: ABDOMINAL DISTENSION
     Dosage: 600 MG, TID
     Route: 048
     Dates: start: 20101210, end: 20101216
  16. CEFTRIAXON SANDOZ [Concomitant]
     Dosage: 1000 MG, Q 12H
     Route: 042
     Dates: start: 20101216, end: 20101217
  17. BROWN MIXTURE [Concomitant]
     Indication: COUGH
     Dosage: 40 ML, QID
     Route: 048
     Dates: start: 20101105, end: 20101111
  18. CEFTRIAXON SANDOZ [Concomitant]
     Indication: INFECTION PROPHYLAXIS
     Dosage: 1000 MG, STAT
     Route: 042
     Dates: start: 20101216, end: 20101216

REACTIONS (5)
  - VOMITING [None]
  - MULTI-ORGAN FAILURE [None]
  - ALANINE AMINOTRANSFERASE INCREASED [None]
  - ASPARTATE AMINOTRANSFERASE INCREASED [None]
  - NAUSEA [None]
